FAERS Safety Report 9784204 (Version 1)
Quarter: 2013Q4

REPORT INFORMATION
  Report Type: Report from Study
  Country: DE (occurrence: DE)
  Receive Date: 20131226
  Receipt Date: 20131226
  Transmission Date: 20140711
  Serious: Yes (Other)
  Sender: FDA-Public Use
  Company Number: DE-BAYER-2013-156833

PATIENT
  Age: 53 Year
  Sex: Female

DRUGS (2)
  1. BETAFERON [Suspect]
     Dosage: 1 ML, UNK
     Route: 058
     Dates: start: 201311
  2. CETIRIZINE [Concomitant]
     Indication: HOUSE DUST ALLERGY
     Dosage: UNK

REACTIONS (3)
  - Cough [None]
  - Wheezing [None]
  - Bronchospasm [None]
